FAERS Safety Report 8372813-5 (Version None)
Quarter: 2012Q2

REPORT INFORMATION
  Report Type: 
  Country: None (occurrence: None)
  Receive Date: 20120521
  Receipt Date: 20120510
  Transmission Date: 20120825
  Serious: Yes (Other)
  Sender: FDA-Public Use
  Company Number: CA-VERTEX PHARMACEUTICALS INC.-AE-2012-005696

PATIENT
  Sex: Male
  Weight: 89 kg

DRUGS (3)
  1. RIBAVIRIN [Concomitant]
     Indication: HEPATITIS C
     Dates: start: 20120412
  2. PEGASYS [Concomitant]
     Indication: HEPATITIS C
     Dates: start: 20120412
  3. INCIVEK [Suspect]
     Indication: HEPATITIS C
     Route: 048
     Dates: start: 20120412

REACTIONS (1)
  - RASH GENERALISED [None]
